FAERS Safety Report 9640881 (Version 1)
Quarter: 2013Q4

REPORT INFORMATION
  Report Type: Spontaneous
  Country: US (occurrence: US)
  Receive Date: 20131023
  Receipt Date: 20131023
  Transmission Date: 20140711
  Serious: No
  Sender: FDA-Public Use
  Company Number: US-ABBVIE-12P-163-1019277-00

PATIENT
  Age: 50 Year
  Sex: Female
  Weight: 94.89 kg

DRUGS (2)
  1. LUPRON DEPOT [Suspect]
     Indication: UTERINE LEIOMYOMA
     Dates: start: 201208
  2. NORETHIDRONE ACETATE [Concomitant]
     Indication: VAGINAL HAEMORRHAGE

REACTIONS (3)
  - Menstrual disorder [Recovered/Resolved]
  - Weight increased [Not Recovered/Not Resolved]
  - Muscle spasms [Recovered/Resolved]
